FAERS Safety Report 25526156 (Version 1)
Quarter: 2025Q3

REPORT INFORMATION
  Report Type: Report from Study
  Country: EU (occurrence: EU)
  Receive Date: 20250707
  Receipt Date: 20250707
  Transmission Date: 20251021
  Serious: Yes (Other)
  Sender: MYLAN
  Company Number: EU-MYLANLABS-2025M1056135

PATIENT
  Sex: Female

DRUGS (1)
  1. GLATIRAMER ACETATE [Suspect]
     Active Substance: GLATIRAMER ACETATE
     Indication: Multiple sclerosis
     Dosage: UNK UNK, 3XW, (40 MILLIGRAM PER MILLILITRE)
     Dates: start: 20230802, end: 20240601

REACTIONS (1)
  - Unevaluable event [Recovered/Resolved with Sequelae]

NARRATIVE: CASE EVENT DATE: 20240201
